FAERS Safety Report 10215094 (Version 2)
Quarter: 2014Q2

REPORT INFORMATION
  Report Type: Spontaneous
  Country: ZA (occurrence: ZA)
  Receive Date: 20140603
  Receipt Date: 20140611
  Transmission Date: 20141212
  Serious: Yes (Other)
  Sender: FDA-Public Use
  Company Number: ZA-PFIZER INC-2014149580

PATIENT
  Age: 4 Month
  Sex: Male
  Weight: 8 kg

DRUGS (1)
  1. ZITHROMAX [Suspect]
     Indication: UPPER RESPIRATORY TRACT INFECTION
     Dosage: 3ML FOUR TIMES IN ONE DAY (200 MG IN 24 HOURS)
     Route: 048
     Dates: start: 20140521, end: 20140522

REACTIONS (2)
  - Drug dispensing error [Unknown]
  - Deafness [Recovering/Resolving]
